FAERS Safety Report 5282464-7 (Version None)
Quarter: 2007Q1

REPORT INFORMATION
  Report Type: 
  Country: None (occurrence: None)
  Receive Date: 20070326
  Receipt Date: 20070314
  Transmission Date: 20070707
  Serious: Yes (Other)
  Sender: FDA-Public Use
  Company Number: 238325

PATIENT
  Age: 67 Year
  Sex: Male

DRUGS (9)
  1. RITUXAN [Suspect]
     Indication: LYMPHOMA
     Dates: start: 20061106
  2. DOXORUBICIN HCL [Suspect]
     Indication: LYMPHOMA
     Dates: start: 20061106
  3. CYCLOPHOSPHAMIDE [Concomitant]
  4. METHOTREXATE [Concomitant]
  5. VINCRISTINE [Concomitant]
  6. DEXAMETHASONE TAB [Concomitant]
  7. CYTARABINE [Concomitant]
  8. LEUCOVORIN CALCIUM [Concomitant]
  9. SODIUM BICARBONATE IN PLASTIC CONTAINER [Concomitant]

REACTIONS (5)
  - DYSPNOEA [None]
  - EJECTION FRACTION DECREASED [None]
  - FLUID RETENTION [None]
  - PALPITATIONS [None]
  - WEIGHT INCREASED [None]
